FAERS Safety Report 4613913-2 (Version None)
Quarter: 2005Q1

REPORT INFORMATION
  Report Type: 
  Country: None (occurrence: None)
  Receive Date: 20050321
  Receipt Date: 20050314
  Transmission Date: 20050727
  Serious: Yes (Disabling)
  Sender: FDA-Public Use
  Company Number: GB-GLAXOSMITHKLINE-B0374734A

PATIENT
  Age: 69 Year
  Sex: Female

DRUGS (7)
  1. AMOXICILLIN [Suspect]
     Indication: URINARY TRACT INFECTION
     Dosage: 500MG THREE TIMES PER DAY
     Route: 042
     Dates: start: 20050216, end: 20050223
  2. BECLOMETHASONE [Suspect]
     Indication: WHEEZING
     Dosage: 200MCG TWICE PER DAY
  3. GABAPENTIN [Concomitant]
     Indication: PAIN
     Dosage: 300MG PER DAY
     Route: 048
  4. KLIOFEM [Concomitant]
     Dosage: 1UNIT PER DAY
     Route: 048
  5. BUPRENORPHINE [Concomitant]
     Indication: PAIN
     Route: 062
  6. CALCICHEW D3 [Concomitant]
     Dosage: 1UNIT PER DAY
     Route: 065
  7. ALBUTEROL [Concomitant]

REACTIONS (1)
  - ORAL CANDIDIASIS [None]
